FAERS Safety Report 9554777 (Version 2)
Quarter: 2013Q4

REPORT INFORMATION
  Report Type: Spontaneous
  Country: IT (occurrence: IT)
  Receive Date: 20130926
  Receipt Date: 20131011
  Transmission Date: 20140711
  Serious: Yes (Life-Threatening, Other)
  Sender: FDA-Public Use
  Company Number: IT-BIOGENIDEC-2013BI090599

PATIENT
  Age: 54 Year
  Sex: Male
  Weight: 130 kg

DRUGS (7)
  1. TYSABRI [Suspect]
     Indication: MULTIPLE SCLEROSIS
     Route: 042
     Dates: start: 20130707, end: 20130808
  2. SOLU-MEDROL [Concomitant]
  3. ASPIRIN [Concomitant]
  4. TELMISARTAN [Concomitant]
  5. AMLODIPINE [Concomitant]
  6. METFORMIN [Concomitant]
  7. CARVEDILOL [Concomitant]

REACTIONS (1)
  - Anaphylactic shock [Recovered/Resolved]
